FAERS Safety Report 19092193 (Version 2)
Quarter: 2021Q2

REPORT INFORMATION
  Report Type: Spontaneous
  Country: NL (occurrence: NL)
  Receive Date: 20210405
  Receipt Date: 20210521
  Transmission Date: 20210717
  Serious: Yes (Death, Hospitalization)
  Sender: FDA-Public Use
  Company Number: NL-ACCORD-221856

PATIENT
  Age: 85 Year
  Sex: Male
  Weight: 93 kg

DRUGS (7)
  1. PFIZER?BIONTECH COVID?19 VACCINE [Suspect]
     Active Substance: TOZINAMERAN
     Indication: COVID-19 IMMUNISATION
     Dosage: SOLUTION FOR INJECTION 0.3 ML
     Dates: start: 20210204
  2. PROPRANOLOL [Concomitant]
     Active Substance: PROPRANOLOL HYDROCHLORIDE
     Dosage: 1 DD 40MG??TABLET 40MG
  3. METFORMIN [Concomitant]
     Active Substance: METFORMIN HYDROCHLORIDE
     Dosage: 1 DD 500 MG??TABLET 500MG
  4. HYPROMELLOSE/HYPROMELLOSE PHTHALATE [Concomitant]
     Active Substance: HYPROMELLOSE PHTHALATE\HYPROMELLOSES
     Dosage: EYE DROPS 3 MG / ML
  5. CALCI CHEW D3 [Concomitant]
     Active Substance: CALCIUM CARBONATE\CHOLECALCIFEROL
     Dosage: CHEWABLE TABLET 1.25 G / 400 IU (500 MG CA) / CALCI CHEW D3 CHEWABLE TABLET 500 MG / 400 IU
  6. CLOZAPINE. [Suspect]
     Active Substance: CLOZAPINE
     Indication: HALLUCINATION
     Dosage: 1 DD 2 TABLETS?6.25 MG TABLETS
     Dates: start: 2020
  7. PARACETAMOL [Concomitant]
     Active Substance: ACETAMINOPHEN
     Dosage: 3DD 2 TABL OF 500 MG

REACTIONS (3)
  - Pneumonia aspiration [Fatal]
  - Somnolence [Unknown]
  - Vomiting [Fatal]

NARRATIVE: CASE EVENT DATE: 20210206
